FAERS Safety Report 18088407 (Version 2)
Quarter: 2020Q3

REPORT INFORMATION
  Report Type: Report from Study
  Country: BR (occurrence: BR)
  Receive Date: 20200729
  Receipt Date: 20200730
  Transmission Date: 20201103
  Serious: Yes (Other)
  Sender: FDA-Public Use
  Company Number: BR-SA-2020SA170888

PATIENT

DRUGS (7)
  1. POTASSIUM PHOSPHATE [POTASSIUM PHOSPHATE DIBASIC] [Concomitant]
     Dosage: 2 AMPULE
     Route: 042
     Dates: start: 20200622
  2. MEROPENEM. [Concomitant]
     Active Substance: MEROPENEM
     Dosage: 200 MG, CONT
     Route: 040
     Dates: start: 20200622, end: 20200622
  3. SERUM GLUCOSE [Concomitant]
     Active Substance: DEXTROSE
     Dosage: 50 ML, PRN,  GLUCOSE SERUM 10% ( GLUCOSE 50%)
     Route: 042
     Dates: start: 20200623, end: 20200623
  4. SARILUMAB [Suspect]
     Active Substance: SARILUMAB
     Indication: COVID-19
     Dosage: INTENDED DOSE 1 BAG,INFUSION RATE OF 100ML/H, 1X
     Route: 042
     Dates: start: 20200617, end: 20200617
  5. VANCOMYCIN [Concomitant]
     Active Substance: VANCOMYCIN
     Dosage: 1000 MG, CONT
     Route: 040
     Dates: start: 20200622, end: 20200622
  6. SERUM GLUCOSE [Concomitant]
     Active Substance: DEXTROSE
     Dosage: 10 IU, PRN, GLUCOSE SERUM 10% (REGULAR INSULIN)
     Route: 042
     Dates: start: 20200623, end: 20200623
  7. DEXAMETHASONE. [Concomitant]
     Active Substance: DEXAMETHASONE
     Indication: PRE-EXISTING DISEASE
     Dosage: 6 MG, QD
     Route: 042
     Dates: start: 20200617

REACTIONS (1)
  - Alanine aminotransferase increased [Not Recovered/Not Resolved]

NARRATIVE: CASE EVENT DATE: 20200626
